FAERS Safety Report 17052512 (Version 4)
Quarter: 2019Q4

REPORT INFORMATION
  Report Type: Spontaneous
  Country: JP (occurrence: JP)
  Receive Date: 20191120
  Receipt Date: 20191226
  Transmission Date: 20200122
  Serious: Yes (Other)
  Sender: FDA-Public Use
  Company Number: JP-ROCHE-2478460

PATIENT
  Age: 61 Year
  Sex: Female
  Weight: 48 kg

DRUGS (32)
  1. TARCEVA [Suspect]
     Active Substance: ERLOTINIB HYDROCHLORIDE
     Route: 048
     Dates: start: 20130917
  2. TARCEVA [Suspect]
     Active Substance: ERLOTINIB HYDROCHLORIDE
     Route: 048
     Dates: start: 20171227, end: 20180314
  3. TAXOTERE [Suspect]
     Active Substance: DOCETAXEL
     Route: 041
     Dates: start: 20170412, end: 20170830
  4. PACLITAXEL. [Concomitant]
     Active Substance: PACLITAXEL
     Indication: LUNG ADENOCARCINOMA
     Dosage: DOSAGE IS UNCERTAIN.
     Route: 041
     Dates: start: 201909
  5. PEMETREXED DISODIUM HEPTAHYDRATE [Concomitant]
     Active Substance: PEMETREXED
     Indication: LUNG ADENOCARCINOMA
     Dosage: DOSAGE IS UNCERTAIN.
     Route: 041
     Dates: start: 201305
  6. GEMCITABINE HYDROCHLORIDE. [Concomitant]
     Active Substance: GEMCITABINE HYDROCHLORIDE
     Indication: LUNG ADENOCARCINOMA
     Dosage: DOSAGE IS UNCERTAIN.
     Route: 041
     Dates: start: 20190910
  7. TECENTRIQ [Suspect]
     Active Substance: ATEZOLIZUMAB
     Indication: NON-SMALL CELL LUNG CANCER
     Dosage: DOSAGE IS UNCERTAIN.
     Route: 041
     Dates: start: 20191029
  8. TARCEVA [Suspect]
     Active Substance: ERLOTINIB HYDROCHLORIDE
     Route: 048
     Dates: start: 20140507, end: 2014
  9. TARCEVA [Suspect]
     Active Substance: ERLOTINIB HYDROCHLORIDE
     Route: 048
     Dates: start: 20140730
  10. AVASTIN [Suspect]
     Active Substance: BEVACIZUMAB
     Dosage: DOSAGE IS UNCERTAIN.
     Route: 041
     Dates: start: 20171101, end: 20180801
  11. AVASTIN [Suspect]
     Active Substance: BEVACIZUMAB
     Dosage: DOSAGE IS UNCERTAIN.
     Route: 041
     Dates: start: 201909
  12. AVASTIN [Suspect]
     Active Substance: BEVACIZUMAB
     Route: 041
     Dates: start: 201308
  13. AVASTIN [Suspect]
     Active Substance: BEVACIZUMAB
     Route: 041
     Dates: start: 20180516, end: 20180815
  14. RANMARK [Suspect]
     Active Substance: DENOSUMAB
     Indication: METASTASES TO BONE
     Route: 065
     Dates: start: 20190904, end: 20190904
  15. ALLELOCK [Suspect]
     Active Substance: OLOPATADINE HYDROCHLORIDE
     Indication: PRODUCT USED FOR UNKNOWN INDICATION
     Dosage: DOSAGE IS UNCERTAIN.
     Route: 065
  16. TARCEVA [Suspect]
     Active Substance: ERLOTINIB HYDROCHLORIDE
     Dosage: ONLY ON THE THIRD
     Route: 048
     Dates: start: 20170725
  17. RANMARK [Suspect]
     Active Substance: DENOSUMAB
     Route: 065
     Dates: start: 20191002, end: 20191002
  18. TAXOTERE [Suspect]
     Active Substance: DOCETAXEL
     Indication: LUNG ADENOCARCINOMA
     Route: 041
     Dates: start: 20150707, end: 20170308
  19. TAGRISSO [Concomitant]
     Active Substance: OSIMERTINIB
     Dosage: DOSE INTERVAL UNCERTAINTY
     Route: 048
     Dates: start: 20181010
  20. TARCEVA [Suspect]
     Active Substance: ERLOTINIB HYDROCHLORIDE
     Route: 048
     Dates: start: 20171213, end: 201712
  21. AVASTIN [Suspect]
     Active Substance: BEVACIZUMAB
     Route: 041
     Dates: start: 20190910, end: 20191002
  22. DOCETAXEL. [Concomitant]
     Active Substance: DOCETAXEL
     Indication: LUNG ADENOCARCINOMA
     Dosage: DOSAGE IS UNCERTAIN.
     Route: 041
  23. CARBOPLATIN. [Concomitant]
     Active Substance: CARBOPLATIN
     Indication: LUNG ADENOCARCINOMA
     Dosage: DOSAGE IS UNCERTAIN.
     Route: 041
     Dates: start: 201909
  24. TARCEVA [Suspect]
     Active Substance: ERLOTINIB HYDROCHLORIDE
     Indication: LUNG ADENOCARCINOMA
     Dosage: DOSAGE IS UNCERTAIN.?MOST RECENT DOSE ON 01/AUG/2018.
     Route: 048
     Dates: start: 20180501
  25. TARCEVA [Suspect]
     Active Substance: ERLOTINIB HYDROCHLORIDE
     Route: 048
     Dates: start: 20150202, end: 20150613
  26. AVASTIN [Suspect]
     Active Substance: BEVACIZUMAB
     Route: 041
     Dates: start: 20161214, end: 20170830
  27. TARCEVA [Suspect]
     Active Substance: ERLOTINIB HYDROCHLORIDE
     Route: 048
     Dates: start: 20170411, end: 20170627
  28. TARCEVA [Suspect]
     Active Substance: ERLOTINIB HYDROCHLORIDE
     Route: 048
     Dates: start: 20180815
  29. AVASTIN [Suspect]
     Active Substance: BEVACIZUMAB
     Route: 041
     Dates: start: 20191029
  30. PEGFILGRASTIM [Concomitant]
     Active Substance: PEGFILGRASTIM
     Route: 058
     Dates: start: 20150805, end: 20161117
  31. AVASTIN [Suspect]
     Active Substance: BEVACIZUMAB
     Indication: LUNG ADENOCARCINOMA
     Route: 041
     Dates: start: 201305
  32. TAGRISSO [Concomitant]
     Active Substance: OSIMERTINIB
     Indication: LUNG ADENOCARCINOMA
     Dosage: DOSE INTERVAL UNCERTAINTY
     Route: 048
     Dates: start: 20180905

REACTIONS (7)
  - Osteonecrosis of jaw [Recovering/Resolving]
  - Neutropenia [Recovered/Resolved]
  - Cholestasis [Recovering/Resolving]
  - Platelet count decreased [Unknown]
  - Disease progression [Unknown]
  - Febrile neutropenia [Unknown]
  - Rash [Recovered/Resolved]

NARRATIVE: CASE EVENT DATE: 20140507
